FAERS Safety Report 6326100-7 (Version None)
Quarter: 2009Q3

REPORT INFORMATION
  Report Type: 
  Country: None (occurrence: None)
  Receive Date: 20090824
  Receipt Date: 20090817
  Transmission Date: 20100115
  Serious: Yes (Other)
  Sender: FDA-Public Use
  Company Number: US-JNJFOC-20090704408

PATIENT
  Sex: Male

DRUGS (1)
  1. RISPERDAL [Suspect]
     Indication: PSYCHOTIC DISORDER
     Route: 048

REACTIONS (7)
  - ABNORMAL BEHAVIOUR [None]
  - DECREASED APPETITE [None]
  - FEELING JITTERY [None]
  - INSOMNIA [None]
  - PARANOIA [None]
  - RASH [None]
  - TREMOR [None]
